FAERS Safety Report 22979621 (Version 3)
Quarter: 2023Q4

REPORT INFORMATION
  Report Type: Report from Study
  Country: US (occurrence: US)
  Receive Date: 20230925
  Receipt Date: 20231122
  Transmission Date: 20240110
  Serious: Yes (Hospitalization, Other)
  Sender: FDA-Public Use
  Company Number: US-OTSUKA-2023_022264

PATIENT
  Age: 44 Year
  Sex: Male
  Weight: 87.09 kg

DRUGS (6)
  1. TOLVAPTAN [Suspect]
     Active Substance: TOLVAPTAN
     Indication: Congenital cystic kidney disease
     Dosage: 45 MG, QD (IN THE MORNING)
     Route: 048
     Dates: start: 20230804, end: 20230911
  2. TOLVAPTAN [Suspect]
     Active Substance: TOLVAPTAN
     Dosage: 15 MG, QD (8 H LATER)
     Route: 048
     Dates: start: 20230804, end: 20230911
  3. SAMSCA [Suspect]
     Active Substance: TOLVAPTAN
     Indication: Product used for unknown indication
     Dosage: 3 DF, QD (IN MORNING)
     Route: 065
     Dates: start: 20230130, end: 20230911
  4. SAMSCA [Suspect]
     Active Substance: TOLVAPTAN
     Dosage: 1 DF, QD (IN EVENING)
     Route: 065
     Dates: start: 20230130, end: 20230911
  5. LOTREL [Concomitant]
     Active Substance: AMLODIPINE BESYLATE\BENAZEPRIL HYDROCHLORIDE
     Indication: Product used for unknown indication
     Dosage: 1 DF, QD (2.5 TO 10 MG)
     Route: 048
     Dates: start: 20230817
  6. PRILOSEC [Concomitant]
     Active Substance: OMEPRAZOLE MAGNESIUM
     Indication: Product used for unknown indication
     Dosage: 10 MG, QD
     Route: 048

REACTIONS (25)
  - Acute kidney injury [Recovered/Resolved]
  - Acute kidney injury [Recovering/Resolving]
  - Dehydration [Recovered/Resolved]
  - Dehydration [Recovered/Resolved]
  - Haemoglobin abnormal [Unknown]
  - Urine analysis abnormal [Unknown]
  - White blood cell count abnormal [Unknown]
  - Blood sodium abnormal [Unknown]
  - Metabolic function test abnormal [Unknown]
  - Blood phosphorus abnormal [Unknown]
  - Full blood count abnormal [Unknown]
  - Abdominal pain upper [Unknown]
  - Vomiting [Not Recovered/Not Resolved]
  - Malaise [Unknown]
  - Blood creatinine increased [Unknown]
  - Abdominal pain [Unknown]
  - Fatigue [Not Recovered/Not Resolved]
  - Decreased appetite [Not Recovered/Not Resolved]
  - Dizziness [Unknown]
  - Diarrhoea [Not Recovered/Not Resolved]
  - Back pain [Not Recovered/Not Resolved]
  - Nausea [Not Recovered/Not Resolved]
  - Pyrexia [Not Recovered/Not Resolved]
  - Inappropriate schedule of product administration [Unknown]
  - Product use in unapproved indication [Unknown]

NARRATIVE: CASE EVENT DATE: 20230801
